FAERS Safety Report 4570706-2 (Version None)
Quarter: 2005Q1

REPORT INFORMATION
  Report Type: 
  Country: None (occurrence: None)
  Receive Date: 20050202
  Receipt Date: 20050113
  Transmission Date: 20050727
  Serious: Yes (Other)
  Sender: FDA-Public Use
  Company Number: FR_041105179

PATIENT
  Age: 66 Year
  Sex: Female

DRUGS (3)
  1. EVISTA [Suspect]
     Indication: OSTEOPOROSIS
     Dosage: 60MG /1 DAY
     Dates: start: 20040201
  2. LEVOTHYROXINE SODIUM [Concomitant]
  3. TENORMINE (ATENOLOL EG) [Concomitant]

REACTIONS (1)
  - THROMBOCYTOPENIA [None]
